FAERS Safety Report 4521687-9 (Version None)
Quarter: 2004Q4

REPORT INFORMATION
  Report Type: 
  Country: None (occurrence: None)
  Receive Date: 20041206
  Receipt Date: 20041119
  Transmission Date: 20050328
  Serious: Yes (Hospitalization, Other)
  Sender: FDA-Public Use
  Company Number: 2004-BP-12161RO

PATIENT
  Age: 84 Year
  Sex: Female

DRUGS (3)
  1. ALBUTEROL [Suspect]
     Indication: CHRONIC OBSTRUCTIVE AIRWAYS DISEASE
     Dosage: 5 MG Q2H X 6 DOSES (SEE TEXT), IH
     Route: 055
  2. IPRATROPIUM BROMIDE [Concomitant]
  3. ALENDRONATE (ALENDRONATE SODIUM) [Concomitant]

REACTIONS (21)
  - ACUTE MYOCARDIAL INFARCTION [None]
  - ATRIAL FIBRILLATION [None]
  - BLOOD BICARBONATE INCREASED [None]
  - BLOOD CREATINE PHOSPHOKINASE [None]
  - BLOOD GLUCOSE INCREASED [None]
  - BLOOD PH DECREASED [None]
  - BLOOD PRESSURE SYSTOLIC INCREASED [None]
  - COLLAPSE OF LUNG [None]
  - COUGH [None]
  - CYANOSIS [None]
  - DYSPNOEA [None]
  - LUNG HYPERINFLATION [None]
  - PCO2 INCREASED [None]
  - PO2 DECREASED [None]
  - RHINORRHOEA [None]
  - SINUS TACHYCARDIA [None]
  - SPEECH DISORDER [None]
  - SPUTUM DISCOLOURED [None]
  - TACHYPNOEA [None]
  - THERAPY NON-RESPONDER [None]
  - WHEEZING [None]
